FAERS Safety Report 25385396 (Version 1)
Quarter: 2025Q2

REPORT INFORMATION
  Report Type: Report from Study
  Country: US (occurrence: US)
  Receive Date: 20250602
  Receipt Date: 20250602
  Transmission Date: 20250717
  Serious: Yes (Hospitalization, Other)
  Sender: ABBVIE
  Company Number: US-ABBVIE-6303535

PATIENT
  Age: 63 Year
  Sex: Female

DRUGS (1)
  1. SKYRIZI [Suspect]
     Active Substance: RISANKIZUMAB-RZAA
     Indication: Psoriasis
     Route: 058
     Dates: start: 20240801

REACTIONS (5)
  - Fibula fracture [Unknown]
  - Fall [Unknown]
  - Pain [Unknown]
  - Gait inability [Not Recovered/Not Resolved]
  - Tibia fracture [Unknown]
